FAERS Safety Report 16679980 (Version 1)
Quarter: 2019Q3

REPORT INFORMATION
  Report Type: Spontaneous
  Country: FR (occurrence: FR)
  Receive Date: 20190807
  Receipt Date: 20190807
  Transmission Date: 20191004
  Serious: Yes (Life-Threatening, Hospitalization)
  Sender: FDA-Public Use
  Company Number: PHHY2019FR182281

PATIENT
  Age: 49 Year
  Sex: Female
  Weight: 102 kg

DRUGS (3)
  1. LASILIX [Suspect]
     Active Substance: FUROSEMIDE
     Indication: CIRRHOSIS ALCOHOLIC
     Dosage: 40 UG, QD
     Route: 048
     Dates: start: 20190607, end: 20190720
  2. ALDACTONE [Suspect]
     Active Substance: SPIRONOLACTONE
     Indication: CIRRHOSIS ALCOHOLIC
     Dosage: 75 MG, QD
     Route: 048
     Dates: start: 20190607, end: 20190720
  3. PANTOPRAZOLE [Suspect]
     Active Substance: PANTOPRAZOLE
     Indication: ULCER
     Dosage: 80 MG, QD
     Route: 048
     Dates: start: 20190627, end: 20190720

REACTIONS (2)
  - Pyrexia [Recovering/Resolving]
  - Agranulocytosis [Recovered/Resolved]

NARRATIVE: CASE EVENT DATE: 20190719
